FAERS Safety Report 9764198 (Version 3)
Quarter: 2014Q1

REPORT INFORMATION
  Report Type: Report from Study
  Country: DE (occurrence: DE)
  Receive Date: 20131216
  Receipt Date: 20140115
  Transmission Date: 20141002
  Serious: Yes (Death)
  Sender: FDA-Public Use
  Company Number: DE-CELGENEUS-062-50794-13115825

PATIENT
  Sex: 0

DRUGS (4)
  1. VIDAZA [Suspect]
     Indication: MYELODYSPLASTIC SYNDROME
     Dosage: 120/80
     Route: 065
     Dates: start: 20110801, end: 20110915
  2. RAMIPRIL [Concomitant]
     Indication: HYPERTENSION
     Route: 048
     Dates: end: 201202
  3. PANTOPRAZOL [Concomitant]
     Indication: REFLUX GASTRITIS
     Route: 048
  4. HCT [Concomitant]
     Indication: HYPERTENSION
     Route: 048
     Dates: end: 201202

REACTIONS (1)
  - Myelodysplastic syndrome [Fatal]
